FAERS Safety Report 20514712 (Version 2)
Quarter: 2022Q1

REPORT INFORMATION
  Report Type: Spontaneous
  Country: US (occurrence: US)
  Receive Date: 20220224
  Receipt Date: 20220317
  Transmission Date: 20220424
  Serious: Yes (Death, Hospitalization)
  Sender: FDA-Public Use
  Company Number: US-TEVA-2022-US-2009393

PATIENT
  Age: 49 Year
  Sex: Female

DRUGS (7)
  1. CISPLATIN [Suspect]
     Active Substance: CISPLATIN
     Indication: Metastatic choriocarcinoma
     Dosage: IN A COMBINATION WITH PACLITAXEL; ALTERNATING WITH PACLITAXEL AND ETOPOSIDE COMBINATION
     Route: 065
  2. ETOPOSIDE [Suspect]
     Active Substance: ETOPOSIDE
     Indication: Metastatic choriocarcinoma
     Dosage: IN A COMBINATION WITH PACLITAXEL; ALTERNATING WITH PACLITAXEL AND CISPLATIN COMBINATION
     Route: 065
  3. PACLITAXEL [Suspect]
     Active Substance: PACLITAXEL
     Indication: Metastatic choriocarcinoma
     Dosage: IN A COMBINATION WITH CISPLATIN AND ETOPOSIDE
     Route: 065
  4. PACLITAXEL [Suspect]
     Active Substance: PACLITAXEL
     Route: 065
  5. IFOSFAMIDE [Suspect]
     Active Substance: IFOSFAMIDE
     Indication: Metastatic choriocarcinoma
     Route: 065
  6. PEMBROLIZUMAB [Suspect]
     Active Substance: PEMBROLIZUMAB
     Indication: Metastatic choriocarcinoma
     Route: 065
     Dates: start: 2019
  7. PEMBROLIZUMAB [Suspect]
     Active Substance: PEMBROLIZUMAB
     Dosage: CONCURRENT WITH RADIATION THERAPY
     Route: 065

REACTIONS (2)
  - Drug ineffective [Fatal]
  - Acute kidney injury [Unknown]
